FAERS Safety Report 26039431 (Version 1)
Quarter: 2025Q4

REPORT INFORMATION
  Report Type: Spontaneous
  Country: JP (occurrence: JP)
  Receive Date: 20251113
  Receipt Date: 20251113
  Transmission Date: 20260118
  Serious: Yes (Hospitalization, Other)
  Sender: ASTELLAS
  Company Number: JP-ASTELLAS-2025-AER-053521

PATIENT
  Age: 7 Decade

DRUGS (3)
  1. XOSPATA [Suspect]
     Active Substance: GILTERITINIB
     Indication: Acute myeloid leukaemia
     Route: 048
     Dates: start: 202509, end: 202509
  2. XOSPATA [Suspect]
     Active Substance: GILTERITINIB
     Dosage: DOSE REDUCTION
     Route: 048
     Dates: start: 202509, end: 202509
  3. QUIZARTINIB [Suspect]
     Active Substance: QUIZARTINIB
     Indication: Product used for unknown indication
     Route: 048
     Dates: start: 202509, end: 202509

REACTIONS (2)
  - Electrocardiogram QT prolonged [Recovering/Resolving]
  - Acute myeloid leukaemia [Not Recovered/Not Resolved]

NARRATIVE: CASE EVENT DATE: 20250901
